FAERS Safety Report 6303209-5 (Version None)
Quarter: 2009Q3

REPORT INFORMATION
  Report Type: 
  Country: None (occurrence: None)
  Receive Date: 20090810
  Receipt Date: 20090311
  Transmission Date: 20100115
  Serious: No
  Sender: FDA-Public Use
  Company Number: A0763287A

PATIENT
  Sex: Female

DRUGS (1)
  1. PAXIL [Suspect]
     Indication: ANXIETY
     Dosage: 5MG PER DAY
     Route: 065
     Dates: start: 20080801

REACTIONS (2)
  - ADVERSE DRUG REACTION [None]
  - PRODUCT QUALITY ISSUE [None]
